FAERS Safety Report 15752306 (Version 2)
Quarter: 2019Q1

REPORT INFORMATION
  Report Type: Spontaneous
  Country: US (occurrence: US)
  Receive Date: 20181221
  Receipt Date: 20190114
  Transmission Date: 20190417
  Serious: Yes (Other)
  Sender: FDA-Public Use
  Company Number: US-ALLERGAN-1858420US

PATIENT
  Age: 75 Year
  Sex: Female

DRUGS (8)
  1. LISINOPRIL. [Concomitant]
     Active Substance: LISINOPRIL
     Indication: HYPERTENSION
     Route: 048
  2. EUCALYPTUS CAMPHOR RUB [Concomitant]
     Indication: PAIN
     Dosage: UNK
     Route: 062
  3. OXYCONTIN [Concomitant]
     Active Substance: OXYCODONE HYDROCHLORIDE
     Indication: PAIN
     Dosage: UNK
     Route: 048
  4. NORCO [Suspect]
     Active Substance: ACETAMINOPHEN\HYDROCODONE BITARTRATE
     Indication: PAIN
     Dosage: 2-3, 325 MG/10MG PILLS, QD
     Route: 048
     Dates: start: 2015
  5. MULTIVITAMIN [Concomitant]
     Active Substance: VITAMINS
     Indication: SUPPLEMENTATION THERAPY
     Dosage: UNK
     Route: 048
  6. CELEBREX [Concomitant]
     Active Substance: CELECOXIB
     Indication: PRODUCT USED FOR UNKNOWN INDICATION
     Dosage: UNK
     Route: 048
  7. JAPANESE PATCHES [Concomitant]
     Indication: PAIN
     Dosage: UNK
     Route: 062
  8. LIDOCAINE. [Suspect]
     Active Substance: LIDOCAINE
     Indication: BACK PAIN
     Dosage: 1 PATCH, Q12H
     Route: 062
     Dates: start: 201806, end: 201812

REACTIONS (6)
  - Back pain [Not Recovered/Not Resolved]
  - Administration site erythema [Recovered/Resolved]
  - Spinal disorder [Recovered/Resolved]
  - Application site rash [Recovered/Resolved]
  - Arthropathy [Recovered/Resolved]
  - Application site pruritus [Recovered/Resolved]

NARRATIVE: CASE EVENT DATE: 201611
